FAERS Safety Report 7248590-8 (Version None)
Quarter: 2011Q1

REPORT INFORMATION
  Report Type: 
  Country: None (occurrence: None)
  Receive Date: 20110128
  Receipt Date: 20101222
  Transmission Date: 20110831
  Serious: Yes (Other)
  Sender: FDA-Public Use
  Company Number: US-BAYER-2010-007504

PATIENT
  Sex: Female
  Weight: 68 kg

DRUGS (2)
  1. ALKA-SELTZER ORIGINAL [Suspect]
     Indication: THROAT TIGHTNESS
     Dosage: 1 DF, QD
     Route: 048
     Dates: start: 20101208
  2. ALKA-SELTZER ORIGINAL [Suspect]
     Indication: OESOPHAGEAL DISORDER

REACTIONS (2)
  - THROAT TIGHTNESS [None]
  - OESOPHAGEAL DISORDER [None]
